FAERS Safety Report 9619341 (Version 1)
Quarter: 2013Q4

REPORT INFORMATION
  Report Type: Spontaneous
  Country: DE (occurrence: DE)
  Receive Date: 20131014
  Receipt Date: 20131014
  Transmission Date: 20140711
  Serious: Yes (Hospitalization, Other)
  Sender: FDA-Public Use
  Company Number: DE-MYLANLABS-2013S1021856

PATIENT
  Sex: Female
  Weight: 1.42 kg

DRUGS (1)
  1. LAMOTRIGINE [Suspect]
     Route: 064

REACTIONS (6)
  - Exposure during pregnancy [Unknown]
  - Feeding disorder neonatal [Recovered/Resolved]
  - Premature baby [Recovered/Resolved]
  - Somnolence [Recovered/Resolved]
  - Small for dates baby [Recovering/Resolving]
  - Vaginal polyp [Unknown]
